FAERS Safety Report 10844823 (Version 2)
Quarter: 2015Q2

REPORT INFORMATION
  Report Type: Spontaneous
  Country: IT (occurrence: IT)
  Receive Date: 20150220
  Receipt Date: 20150417
  Transmission Date: 20150821
  Serious: Yes (Life-Threatening, Hospitalization)
  Sender: FDA-Public Use
  Company Number: IT-ASTRAZENECA-2015SE15154

PATIENT
  Age: 9726 Day
  Sex: Male

DRUGS (6)
  1. SEROQUEL [Suspect]
     Active Substance: QUETIAPINE FUMARATE
     Indication: DRUG ABUSE
     Route: 048
     Dates: start: 20140212, end: 20140213
  2. SEROQUEL [Suspect]
     Active Substance: QUETIAPINE FUMARATE
     Indication: DRUG ABUSE
     Dosage: 100MG IN THE MORNING + 300MG IN THE EVENING
     Route: 048
     Dates: start: 20140709
  3. EN [Suspect]
     Active Substance: DELORAZEPAM
     Indication: DRUG ABUSE
     Dosage: 1 MG/ML, 10ML, 35 DROPS/ DAILY
     Route: 048
     Dates: start: 20131112, end: 20140213
  4. SERTRALINE [Concomitant]
     Active Substance: SERTRALINE HYDROCHLORIDE
     Indication: DEPRESSION
     Route: 048
     Dates: start: 20131112, end: 20140213
  5. SERTRALINE [Concomitant]
     Active Substance: SERTRALINE HYDROCHLORIDE
     Indication: DEPRESSION
     Route: 048
     Dates: start: 20140709
  6. EN [Suspect]
     Active Substance: DELORAZEPAM
     Indication: DRUG ABUSE
     Dosage: 20 DROPS; IN THE EVENING
     Route: 048
     Dates: start: 20140709

REACTIONS (4)
  - Drug abuse [Recovered/Resolved]
  - Sopor [Recovered/Resolved]
  - Personality disorder [Recovered/Resolved]
  - Suicide attempt [Recovered/Resolved]

NARRATIVE: CASE EVENT DATE: 20140212
